FAERS Safety Report 21125069 (Version 1)
Quarter: 2022Q3

REPORT INFORMATION
  Report Type: Spontaneous
  Country: US (occurrence: None)
  Receive Date: 20220722
  Receipt Date: 20220722
  Transmission Date: 20221027
  Serious: Yes (Hospitalization)
  Sender: FDA-Public Use
  Company Number: None

PATIENT
  Age: 65 Year
  Sex: Female

DRUGS (1)
  1. CAPECITABINE [Suspect]
     Active Substance: CAPECITABINE
     Route: 048
     Dates: start: 202203

REACTIONS (4)
  - Nausea [None]
  - Vomiting [None]
  - Weight decreased [None]
  - Dyspnoea [None]

NARRATIVE: CASE EVENT DATE: 20220722
